FAERS Safety Report 6983857-X (Version None)
Quarter: 2010Q3

REPORT INFORMATION
  Report Type: 
  Country: None (occurrence: None)
  Receive Date: 20100914
  Receipt Date: 20090319
  Transmission Date: 20110219
  Serious: Yes (Life-Threatening, Hospitalization)
  Sender: FDA-Public Use
  Company Number: US-WYE-H08574009

PATIENT
  Age: 59 Year
  Sex: Male
  Weight: 99.88 kg

DRUGS (5)
  1. TYGACIL [Suspect]
     Indication: CELLULITIS
     Dosage: UNKNOWN
     Route: 042
  2. LIPIDS NOS [Concomitant]
     Dosage: UNKNOWN
     Route: 042
  3. TPN ELECTROLYTES IN PLASTIC CONTAINER [Concomitant]
     Dosage: UNKNOWN
     Route: 042
  4. NEXIUM [Concomitant]
     Indication: PRODUCT USED FOR UNKNOWN INDICATION
     Route: 042
  5. LACTULOSE [Concomitant]
     Route: 048

REACTIONS (1)
  - HEPATIC FAILURE [None]
